FAERS Safety Report 6407893-7 (Version None)
Quarter: 2009Q4

REPORT INFORMATION
  Report Type: 
  Country: None (occurrence: None)
  Receive Date: 20091020
  Receipt Date: 20091011
  Transmission Date: 20100525
  Serious: Yes (Hospitalization)
  Sender: FDA-Public Use
  Company Number: IL-JNJCH-2009027019

PATIENT
  Age: 46 Year
  Sex: Female

DRUGS (1)
  1. BEN-GAY ULTRA STRENGTH NON-GREASY PAIN RELIEVING CREAM [Suspect]
     Indication: BACK PAIN
     Dosage: TEXT:UNSPECIFIED
     Route: 065

REACTIONS (7)
  - GAIT DISTURBANCE [None]
  - HYPERSENSITIVITY [None]
  - LIP SWELLING [None]
  - OEDEMA PERIPHERAL [None]
  - PRURITUS [None]
  - RASH [None]
  - SWELLING FACE [None]
